FAERS Safety Report 10905143 (Version 1)
Quarter: 2015Q1

REPORT INFORMATION
  Report Type: Spontaneous
  Country: US (occurrence: None)
  Receive Date: 20150107
  Receipt Date: 20150107
  Transmission Date: 20150721
  Serious: No
  Sender: FDA-Public Use
  Company Number: 2014TUS012139

PATIENT
  Age: 42 Year
  Sex: Female

DRUGS (2)
  1. CONTRAVE [Suspect]
     Active Substance: BUPROPION HYDROCHLORIDE\NALTREXONE HYDROCHLORIDE
     Indication: WEIGHT CONTROL
     Route: 048
     Dates: start: 20141118
  2. THYROID MEDICATION [Concomitant]
     Active Substance: UNSPECIFIED INGREDIENT

REACTIONS (1)
  - Somnolence [None]

NARRATIVE: CASE EVENT DATE: 20141118
